FAERS Safety Report 7907681-6 (Version None)
Quarter: 2011Q4

REPORT INFORMATION
  Report Type: 
  Country: None (occurrence: None)
  Receive Date: 20111110
  Receipt Date: 20111031
  Transmission Date: 20120403
  Serious: Yes (Other)
  Sender: FDA-Public Use
  Company Number: US-BAYER-2011-048690

PATIENT
  Age: 17 Year
  Sex: Female
  Weight: 73.469 kg

DRUGS (7)
  1. YAZ [Suspect]
  2. LEXAPRO [Concomitant]
     Dosage: UNK
     Dates: start: 20091025, end: 20100416
  3. BENTYL [Concomitant]
     Dosage: 10 MG, UNK
  4. OXYCODONE HCL [Concomitant]
     Dosage: UNK
     Dates: start: 20091008
  5. YAZ [Suspect]
     Indication: PREMENSTRUAL SYNDROME
     Dosage: UNK
     Dates: start: 20080101, end: 20090101
  6. PROTONIX [Concomitant]
     Dosage: 40 MG, QD
  7. METHYLPREDNISOLONE [Concomitant]
     Dosage: 4 MG, UNK
     Dates: start: 20091009

REACTIONS (5)
  - BILIARY DYSKINESIA [None]
  - GALLBLADDER NON-FUNCTIONING [None]
  - CHOLECYSTITIS CHRONIC [None]
  - INJURY [None]
  - PAIN [None]
